FAERS Safety Report 23475372 (Version 1)
Quarter: 2024Q1

REPORT INFORMATION
  Report Type: Report from Study
  Country: US (occurrence: US)
  Receive Date: 20240204
  Receipt Date: 20240204
  Transmission Date: 20240410
  Serious: No
  Sender: FDA-Public Use
  Company Number: US-EXELIXIS-CABO-23059452

PATIENT
  Sex: Male

DRUGS (2)
  1. CABOMETYX [Suspect]
     Active Substance: CABOZANTINIB S-MALATE
     Indication: Renal cell carcinoma
     Dosage: 60 MG, QD
     Route: 048
     Dates: start: 202212
  2. CABOMETYX [Suspect]
     Active Substance: CABOZANTINIB S-MALATE
     Dosage: 60 MG, QD
     Route: 048

REACTIONS (14)
  - Oropharyngeal pain [Recovering/Resolving]
  - Anxiety [Unknown]
  - Productive cough [Recovering/Resolving]
  - Stress [Unknown]
  - Skin disorder [Recovered/Resolved]
  - Malaise [Unknown]
  - Glossodynia [Recovering/Resolving]
  - Skin ulcer [Unknown]
  - Dry mouth [Recovering/Resolving]
  - Fatigue [Unknown]
  - Constipation [Recovering/Resolving]
  - Weight decreased [Recovering/Resolving]
  - Vomiting [Unknown]
  - Eating disorder [Recovering/Resolving]
